FAERS Safety Report 7770016-6 (Version None)
Quarter: 2011Q3

REPORT INFORMATION
  Report Type: 
  Country: None (occurrence: None)
  Receive Date: 20110922
  Receipt Date: 20100825
  Transmission Date: 20111222
  Serious: No
  Sender: FDA-Public Use
  Company Number: US-ASTRAZENECA-2007UW01696

PATIENT
  Age: 56 Year
  Sex: Female
  Weight: 112.9 kg

DRUGS (29)
  1. SEROQUEL [Suspect]
     Indication: DEPRESSION
     Dosage: 25-200 MG
     Route: 048
     Dates: start: 19981104, end: 20060901
  2. RISPERDAL [Concomitant]
     Indication: BIPOLAR DISORDER
     Dates: start: 19980101, end: 20040101
  3. LEXAPRO [Concomitant]
     Dates: start: 20030318
  4. SEROQUEL [Suspect]
     Dosage: 25 - 200 MG DAILY
     Route: 048
     Dates: start: 20010215
  5. RISPERDAL [Concomitant]
     Dosage: 1 - 2 MG DAILY
     Dates: start: 20010512
  6. WELLBUTRIN SR [Concomitant]
     Dosage: 150 - 400 MG DAILY
     Dates: start: 20010215, end: 20050401
  7. GEODON [Concomitant]
     Dates: start: 20040101
  8. TRAZODONE HYDROCHLORIDE [Concomitant]
     Dates: start: 20040101, end: 20050201
  9. SEROQUEL [Suspect]
     Indication: ANXIETY
     Dosage: 25-200 MG
     Route: 048
     Dates: start: 19981104, end: 20060901
  10. RISPERDAL [Concomitant]
     Indication: DEPRESSION
     Dates: start: 19980101, end: 20040101
  11. RISPERDAL [Concomitant]
     Dates: start: 20010501, end: 20021001
  12. RISPERDAL [Concomitant]
     Dates: start: 20010501, end: 20021001
  13. RISPERDAL [Concomitant]
     Dosage: 1 - 2 MG DAILY
     Dates: start: 20010512
  14. SEROQUEL [Suspect]
     Indication: BIPOLAR DISORDER
     Dosage: 25-200 MG
     Route: 048
     Dates: start: 19981104, end: 20060901
  15. SEROQUEL [Suspect]
     Dosage: 25 - 200 MG DAILY
     Route: 048
     Dates: start: 20010215
  16. ZOLOFT [Concomitant]
     Dosage: 50 - 100 MG DAILY
     Dates: start: 20030722
  17. PROZAC [Concomitant]
     Dosage: 20 - 40 MG DAILY
     Dates: start: 19980101, end: 20020101
  18. VALIUM [Concomitant]
     Dosage: 10 - 30 MG DAILY
     Dates: start: 20010512
  19. ATARAX [Concomitant]
     Dates: start: 20011120
  20. ZOLOFT [Concomitant]
     Dates: start: 20050101
  21. PROZAC [Concomitant]
     Dosage: 20 - 80 MG DAILY
     Dates: start: 20010215
  22. XENICAL [Concomitant]
     Dates: start: 20040101, end: 20050101
  23. XANAX [Concomitant]
     Dates: start: 20031201, end: 20040101
  24. CRESTOR [Concomitant]
     Dates: start: 19980101
  25. ZOCOR [Concomitant]
     Dates: start: 19980101
  26. XANAX [Concomitant]
     Dates: start: 19980101
  27. SEROQUEL [Suspect]
     Dosage: 25 - 200 MG DAILY
     Route: 048
     Dates: start: 20010215
  28. TRICOR [Concomitant]
     Dates: start: 19980101
  29. DIAZEPAM [Concomitant]
     Dates: start: 20010101, end: 20051001

REACTIONS (8)
  - TYPE 2 DIABETES MELLITUS [None]
  - BLOOD TRIGLYCERIDES INCREASED [None]
  - BLOOD CHOLESTEROL INCREASED [None]
  - HYPERGLYCAEMIA [None]
  - OVERWEIGHT [None]
  - KIDNEY INFECTION [None]
  - HYPERLIPIDAEMIA [None]
  - HYPERTENSION [None]
